FAERS Safety Report 10713799 (Version 5)
Quarter: 2015Q3

REPORT INFORMATION
  Report Type: Spontaneous
  Country: US (occurrence: US)
  Receive Date: 20150115
  Receipt Date: 20150728
  Transmission Date: 20151125
  Serious: Yes (Other)
  Sender: FDA-Public Use
  Company Number: US-PFIZER INC-2015016279

PATIENT
  Age: 54 Year
  Sex: Female

DRUGS (2)
  1. LYRICA [Suspect]
     Active Substance: PREGABALIN
     Dosage: UNK, ONCE A DAY
  2. LYRICA [Suspect]
     Active Substance: PREGABALIN
     Indication: FIBROMYALGIA
     Dosage: 225 MG, BID
     Route: 048
     Dates: start: 2011

REACTIONS (11)
  - Confusional state [Unknown]
  - Nausea [Recovered/Resolved]
  - Drug withdrawal syndrome [Unknown]
  - Malaise [Recovered/Resolved]
  - Seizure [Unknown]
  - Vomiting [Recovered/Resolved]
  - Abasia [Unknown]
  - Incontinence [Unknown]
  - Dizziness [Recovered/Resolved]
  - Impaired driving ability [Recovered/Resolved]
  - Intentional product misuse [Recovered/Resolved]

NARRATIVE: CASE EVENT DATE: 20141217
